FAERS Safety Report 21447554 (Version 1)
Quarter: 2022Q4

REPORT INFORMATION
  Report Type: Report from Study
  Country: US (occurrence: US)
  Receive Date: 20221012
  Receipt Date: 20221012
  Transmission Date: 20230112
  Serious: Yes (Hospitalization)
  Sender: FDA-Public Use
  Company Number: US-ABBVIE-4151337

PATIENT
  Sex: Male
  Weight: 86.182 kg

DRUGS (1)
  1. SKYRIZI [Suspect]
     Active Substance: RISANKIZUMAB-RZAA
     Indication: Psoriasis
     Dosage: WEEK 0. WEEK 4. THEN EVERY 12 WEEKS?FORM STRENGTH: 150 MILLIGRAM
     Route: 058

REACTIONS (2)
  - Mental disorder [Not Recovered/Not Resolved]
  - Psoriasis [Not Recovered/Not Resolved]
